FAERS Safety Report 9432465 (Version 2)
Quarter: 2013Q3

REPORT INFORMATION
  Report Type: Spontaneous
  Country: US (occurrence: US)
  Receive Date: 20130731
  Receipt Date: 20130909
  Transmission Date: 20140515
  Serious: No
  Sender: FDA-Public Use
  Company Number: US-TEVA-421811USA

PATIENT
  Age: 28 Year
  Sex: Female
  Weight: 56.75 kg

DRUGS (3)
  1. PARAGARD 380A [Suspect]
     Indication: CONTRACEPTION
     Dates: start: 20130307
  2. VALACICLOVIR HYDROCHLORIDE [Concomitant]
     Indication: ORAL HERPES
     Route: 048
  3. VYVANSE [Concomitant]
     Indication: ATTENTION DEFICIT/HYPERACTIVITY DISORDER
     Dosage: 50 MILLIGRAM DAILY;
     Route: 048

REACTIONS (5)
  - Menorrhagia [Recovered/Resolved with Sequelae]
  - Nausea [Not Recovered/Not Resolved]
  - Abdominal pain [Not Recovered/Not Resolved]
  - Menstruation delayed [Recovered/Resolved]
  - Fatigue [Not Recovered/Not Resolved]
